FAERS Safety Report 6299498-6 (Version None)
Quarter: 2009Q3

REPORT INFORMATION
  Report Type: 
  Country: None (occurrence: None)
  Receive Date: 20090806
  Receipt Date: 20090727
  Transmission Date: 20100115
  Serious: Yes (Hospitalization)
  Sender: FDA-Public Use
  Company Number: B0587395A

PATIENT
  Sex: Female

DRUGS (4)
  1. ADVAIR HFA [Suspect]
     Indication: DRUG USE FOR UNKNOWN INDICATION
     Route: 055
  2. ALBUTEROL [Concomitant]
     Route: 055
  3. EFFEXOR [Concomitant]
     Route: 048
  4. TRAZODONE HCL [Concomitant]
     Route: 048

REACTIONS (7)
  - ASTHMA [None]
  - BRONCHITIS [None]
  - BRONCHOSPASM [None]
  - CHEST PAIN [None]
  - COUGH [None]
  - DYSPNOEA [None]
  - WHEEZING [None]
